FAERS Safety Report 4772679-6 (Version None)
Quarter: 2005Q3

REPORT INFORMATION
  Report Type: 
  Country: None (occurrence: None)
  Receive Date: 20050919
  Receipt Date: 20050907
  Transmission Date: 20060218
  Serious: Yes (Other)
  Sender: FDA-Public Use
  Company Number: 200512595JP

PATIENT
  Age: 67 Year
  Sex: Female
  Weight: 27 kg

DRUGS (6)
  1. LASIX [Suspect]
     Indication: OEDEMA
     Route: 042
     Dates: end: 20050905
  2. TAKEPRON [Concomitant]
     Route: 048
  3. ACINON [Concomitant]
     Route: 048
     Dates: end: 20050905
  4. DESYREL [Concomitant]
     Route: 048
     Dates: end: 20050905
  5. PAXIL [Concomitant]
     Route: 048
     Dates: end: 20050905
  6. DOGMATYL [Concomitant]
     Dates: end: 20050905

REACTIONS (3)
  - DEPRESSED LEVEL OF CONSCIOUSNESS [None]
  - HYPOGLYCAEMIA [None]
  - LIVER DISORDER [None]
